FAERS Safety Report 9782596 (Version 2)
Quarter: 2014Q1

REPORT INFORMATION
  Report Type: Report from Study
  Country: FR (occurrence: FR)
  Receive Date: 20131226
  Receipt Date: 20140209
  Transmission Date: 20141002
  Serious: Yes (Hospitalization, Other)
  Sender: FDA-Public Use
  Company Number: PHHY2013FR151179

PATIENT
  Age: 73 Year
  Sex: Female

DRUGS (10)
  1. ACLASTA/ZOLEDRONATE [Suspect]
     Indication: OSTEOPOROSIS
     Dosage: 5 MG, UNK
     Route: 042
     Dates: start: 201111
  2. PIASCLEDINE                        /01305801/ [Concomitant]
     Dosage: UNK UKN, UNK
     Dates: start: 2001
  3. TRAMADOL [Concomitant]
     Dosage: UNK UKN, UNK
     Dates: start: 2011
  4. OMEPRAZOLE [Concomitant]
     Dosage: UNK UKN, UNK
     Dates: start: 2000
  5. RIVOTRIL [Concomitant]
     Dosage: UNK UKN, UNK
     Dates: start: 2005, end: 201112
  6. LAROXYL [Concomitant]
     Dosage: UNK UKN, UNK
     Dates: start: 2005, end: 201112
  7. NABUCOX [Concomitant]
     Dosage: UNK UKN, UNK
     Dates: start: 2007, end: 2011
  8. PROZAC [Concomitant]
     Dosage: UNK UKN, UNK
     Dates: end: 201201
  9. BI PROFENID [Concomitant]
     Dosage: UNK UKN, UNK
  10. UVEDOSE [Concomitant]
     Dosage: 100000 IU, UNK
     Dates: start: 201112

REACTIONS (1)
  - Depression [Recovering/Resolving]
